FAERS Safety Report 5364789-X (Version None)
Quarter: 2007Q2

REPORT INFORMATION
  Report Type: 
  Country: None (occurrence: None)
  Receive Date: 20070621
  Receipt Date: 20070618
  Transmission Date: 20071010
  Serious: Yes (Other)
  Sender: FDA-Public Use
  Company Number: PHEH2007US08907

PATIENT
  Age: 7 Year

DRUGS (1)
  1. TRILEPTAL [Suspect]

REACTIONS (2)
  - DYSPHAGIA [None]
  - TONSILLECTOMY [None]
